FAERS Safety Report 7933764-0 (Version None)
Quarter: 2011Q4

REPORT INFORMATION
  Report Type: 
  Country: None (occurrence: None)
  Receive Date: 20111122
  Receipt Date: 20111109
  Transmission Date: 20120403
  Serious: Yes (Other)
  Sender: FDA-Public Use
  Company Number: CA-ROCHE-1011401

PATIENT
  Sex: Female
  Weight: 72.64 kg

DRUGS (4)
  1. MABTHERA [Suspect]
     Indication: RHEUMATOID ARTHRITIS
     Route: 042
     Dates: start: 20110628
  2. VITAMIN D [Concomitant]
  3. CALCIUM SUPPLEMENT [Concomitant]
  4. METHOTREXATE [Concomitant]

REACTIONS (1)
  - SINUS POLYP [None]
